FAERS Safety Report 5871774-8 (Version None)
Quarter: 2008Q3

REPORT INFORMATION
  Report Type: 
  Country: None (occurrence: None)
  Receive Date: 20080905
  Receipt Date: 20080826
  Transmission Date: 20090109
  Serious: Yes (Hospitalization)
  Sender: FDA-Public Use
  Company Number: US-ROCHE-581936

PATIENT
  Age: 78 Year
  Sex: Female

DRUGS (2)
  1. BONIVA [Suspect]
     Indication: OSTEOPOROSIS
     Route: 065
     Dates: start: 20050101
  2. PROTONIX [Concomitant]
     Dosage: INDICATION: FOR STOMACH

REACTIONS (4)
  - DIARRHOEA [None]
  - NON-HODGKIN'S LYMPHOMA [None]
  - PELVIC FRACTURE [None]
  - VOMITING [None]
